FAERS Safety Report 13359328 (Version 1)
Quarter: 2017Q1

REPORT INFORMATION
  Report Type: Spontaneous
  Country: US (occurrence: US)
  Receive Date: 20170321
  Receipt Date: 20170321
  Transmission Date: 20170429
  Serious: Yes (Hospitalization)
  Sender: FDA-Public Use
  Company Number: None

PATIENT
  Age: 57 Year
  Sex: Female
  Weight: 129.3 kg

DRUGS (3)
  1. METFORMIN HYDROCHLORIDE. [Suspect]
     Active Substance: METFORMIN HYDROCHLORIDE
     Dates: end: 201703
  2. CARBOPLATIN. [Suspect]
     Active Substance: CARBOPLATIN
     Dates: end: 20170222
  3. TAXOL [Suspect]
     Active Substance: PACLITAXEL
     Dates: end: 20170222

REACTIONS (4)
  - Chills [None]
  - Pyrexia [None]
  - Medical device site pain [None]
  - Staphylococcal bacteraemia [None]

NARRATIVE: CASE EVENT DATE: 20170305
